FAERS Safety Report 16631880 (Version 2)
Quarter: 2019Q3

REPORT INFORMATION
  Report Type: Spontaneous
  Country: BE (occurrence: BE)
  Receive Date: 20190725
  Receipt Date: 20190910
  Transmission Date: 20191004
  Serious: Yes (Death, Hospitalization, Other)
  Sender: FDA-Public Use
  Company Number: BE-ELI_LILLY_AND_COMPANY-BE201907011344

PATIENT
  Sex: Male
  Weight: 84 kg

DRUGS (3)
  1. PEMETREXED. [Suspect]
     Active Substance: PEMETREXED
     Indication: MESOTHELIOMA MALIGNANT
     Dosage: UNK UNK, UNKNOWN
     Route: 065
     Dates: start: 201811, end: 201812
  2. CARBOPLATIN. [Suspect]
     Active Substance: CARBOPLATIN
     Indication: MESOTHELIOMA MALIGNANT
     Dosage: UNK
     Route: 065
     Dates: start: 201811, end: 201812
  3. OPDIVO [Suspect]
     Active Substance: NIVOLUMAB
     Indication: MESOTHELIOMA MALIGNANT
     Dosage: 3 MG/KG
     Route: 065
     Dates: end: 201903

REACTIONS (2)
  - Intentional product use issue [Unknown]
  - Anaphylactic shock [Fatal]

NARRATIVE: CASE EVENT DATE: 20181224
